FAERS Safety Report 5721194-1 (Version None)
Quarter: 2008Q2

REPORT INFORMATION
  Report Type: 
  Country: None (occurrence: None)
  Receive Date: 20080423
  Receipt Date: 20071127
  Transmission Date: 20081010
  Serious: Yes (Other)
  Sender: FDA-Public Use
  Company Number: 251041

PATIENT
  Sex: Female

DRUGS (17)
  1. AVASTIN [Suspect]
     Indication: COLORECTAL CANCER METASTATIC
     Dosage: 10 MG/KG, INTRAVENOUS
     Route: 042
     Dates: start: 20070425
  2. LEUCOVORIN CALCIUM [Concomitant]
  3. FLUOROURACIL [Concomitant]
  4. OXALIPLATIN [Concomitant]
  5. GEMZAR [Concomitant]
  6. SOLU-MEDROL [Concomitant]
  7. ALOXI [Concomitant]
  8. TYLENOL (CAPLET) [Concomitant]
  9. PEPCID [Concomitant]
  10. REGLAN [Concomitant]
  11. LEVOTHYROXINE SODIUM [Concomitant]
  12. CALCIUM (CALCIUM NOS) [Concomitant]
  13. VITAMIN D (CHOLECALCIFEROL) [Concomitant]
  14. MULTIVITAMIN (MULTIVITAMINS NOS) [Concomitant]
  15. PREVACID [Concomitant]
  16. FOLATE (FOLATE SODIUM) [Concomitant]
  17. ALEVE (CAPLET) [Concomitant]

REACTIONS (1)
  - BLOOD PRESSURE INCREASED [None]
